FAERS Safety Report 6944678-7 (Version None)
Quarter: 2010Q3

REPORT INFORMATION
  Report Type: 
  Country: None (occurrence: None)
  Receive Date: 20100827
  Receipt Date: 20100817
  Transmission Date: 20110219
  Serious: Yes (Other)
  Sender: FDA-Public Use
  Company Number: US-WYE-H17002110

PATIENT
  Sex: Female
  Weight: 77.18 kg

DRUGS (5)
  1. PROTONIX [Suspect]
     Indication: OESOPHAGITIS
     Dosage: UNKNOWN DAILY DOSE
     Dates: start: 20070101, end: 20090101
  2. PROTONIX [Suspect]
     Dosage: UNSPECIFIED DOSE EVERY OTHER DAY
     Dates: start: 20090101
  3. CALCIUM [Concomitant]
     Dosage: UNKNOWN
  4. CYANOCOBALAMIN [Concomitant]
     Dosage: UNKNOWN
  5. ASCORBIC ACID/ERGOCALCIFEROL/FOLIC ACID/NICOTINAMIDE/PANTHENOL/RETINOL [Concomitant]
     Dosage: UNKNOWN

REACTIONS (3)
  - CATARACT [None]
  - DEPRESSION [None]
  - VISUAL FIELD DEFECT [None]
